FAERS Safety Report 5094315-4 (Version None)
Quarter: 2006Q3

REPORT INFORMATION
  Report Type: 
  Country: None (occurrence: None)
  Receive Date: 20060830
  Receipt Date: 20060830
  Transmission Date: 20061208
  Serious: Yes (Life-Threatening, Hospitalization)
  Sender: FDA-Public Use
  Company Number: None

PATIENT
  Sex: Female
  Weight: 70.7611 kg

DRUGS (23)
  1. WELLBUTRIN XL [Suspect]
     Indication: DEPRESSION
     Dosage: 150 MG DAILY PO
     Route: 048
  2. ZYPREXA [Suspect]
     Indication: SCHIZOPHRENIA
     Dosage: 20 MG AT BEDTIME PO
     Route: 048
  3. COMBIVENT [Concomitant]
  4. LASIX [Concomitant]
  5. COZAAR [Concomitant]
  6. METOPROLOL TARTRATE [Concomitant]
  7. SINGULAIR [Concomitant]
  8. TRIHEXPHENIDYL [Concomitant]
  9. VENLAFAXINE HCL [Concomitant]
  10. ZYPREXA [Concomitant]
  11. NITROGLYCERIN [Concomitant]
  12. ROZEREM [Concomitant]
  13. PRILOSEC [Concomitant]
  14. SEROQUEL [Concomitant]
  15. TRAZODONE HCL [Concomitant]
  16. WELLBUTRIN XL [Concomitant]
  17. LANTUS [Concomitant]
  18. HUMALOG [Concomitant]
  19. POTASSIUM CHLORIDE [Concomitant]
  20. PREDNISONE TAB [Concomitant]
  21. LOXAPINE [Concomitant]
  22. ULTRAM/ACETOMINOPHEN [Concomitant]
  23. METOLAZONE [Concomitant]

REACTIONS (3)
  - GRAND MAL CONVULSION [None]
  - PNEUMONIA [None]
  - STATUS EPILEPTICUS [None]
